FAERS Safety Report 6618941-3 (Version None)
Quarter: 2010Q1

REPORT INFORMATION
  Report Type: 
  Country: None (occurrence: None)
  Receive Date: 20100308
  Receipt Date: 20100303
  Transmission Date: 20100710
  Serious: Yes (Disabling)
  Sender: FDA-Public Use
  Company Number: US-GENENTECH-282011

PATIENT
  Sex: Female
  Weight: 76.19 kg

DRUGS (2)
  1. BEVACIZUMAB [Suspect]
     Indication: BREAST CANCER
     Dosage: 820 MG, Q2W
     Route: 042
     Dates: start: 20081021, end: 20090217
  2. TAXOL [Suspect]
     Indication: DRUG USE FOR UNKNOWN INDICATION

REACTIONS (1)
  - SKIN ULCER [None]
